FAERS Safety Report 25001839 (Version 1)
Quarter: 2025Q1

REPORT INFORMATION
  Report Type: Spontaneous
  Country: US (occurrence: US)
  Receive Date: 20250224
  Receipt Date: 20250224
  Transmission Date: 20250409
  Serious: No
  Sender: ABBVIE
  Company Number: US-ABBVIE-6143436

PATIENT
  Age: 27 Year
  Sex: Female
  Weight: 46.719 kg

DRUGS (5)
  1. HUMIRA [Suspect]
     Active Substance: ADALIMUMAB
     Indication: Rheumatoid arthritis
     Route: 058
     Dates: start: 202310, end: 202404
  2. HUMIRA [Suspect]
     Active Substance: ADALIMUMAB
     Dosage: LAST ADMINISTRATION DATE-2025
     Route: 058
     Dates: start: 20250127
  3. HUMIRA [Suspect]
     Active Substance: ADALIMUMAB
     Route: 058
     Dates: start: 20250218
  4. FOLIC ACID [Concomitant]
     Active Substance: FOLIC ACID
     Indication: Rheumatoid arthritis
  5. METHOTREXATE [Concomitant]
     Active Substance: METHOTREXATE
     Indication: Rheumatoid arthritis

REACTIONS (7)
  - Peripheral swelling [Unknown]
  - Device issue [Not Recovered/Not Resolved]
  - Fatigue [Recovered/Resolved]
  - Oropharyngeal pain [Recovered/Resolved]
  - Pain in extremity [Unknown]
  - Ear infection [Recovered/Resolved]
  - Sinusitis [Recovered/Resolved]

NARRATIVE: CASE EVENT DATE: 20250205
